FAERS Safety Report 9209562 (Version 2)
Quarter: 2013Q2

REPORT INFORMATION
  Report Type: Spontaneous
  Country: US (occurrence: US)
  Receive Date: 20130404
  Receipt Date: 20130528
  Transmission Date: 20140414
  Serious: No
  Sender: FDA-Public Use
  Company Number: US-009507513-1303USA012873

PATIENT
  Age: 85 Year
  Sex: Female

DRUGS (1)
  1. DR. SCHOLLS CALLUS REMOVERS [Suspect]
     Indication: PRODUCT USED FOR UNKNOWN INDICATION
     Dosage: UNK

REACTIONS (3)
  - Cardiovascular insufficiency [Unknown]
  - Application site discolouration [Recovering/Resolving]
  - Application site ulcer [Recovering/Resolving]
